FAERS Safety Report 6572905-7 (Version None)
Quarter: 2010Q1

REPORT INFORMATION
  Report Type: 
  Country: None (occurrence: None)
  Receive Date: 20100207
  Receipt Date: 20100127
  Transmission Date: 20100710
  Serious: Yes (Hospitalization)
  Sender: FDA-Public Use
  Company Number: DE-BRISTOL-MYERS SQUIBB COMPANY-14952246

PATIENT
  Age: 69 Year
  Sex: Female

DRUGS (1)
  1. IXABEPILONE [Suspect]
     Indication: BREAST CANCER
     Dosage: SECOND DOSE GIVEN ON 02-MAR-2009
     Route: 042
     Dates: start: 20090209, end: 20090416

REACTIONS (1)
  - CARDIAC FAILURE [None]
